FAERS Safety Report 13609160 (Version 2)
Quarter: 2024Q3

REPORT INFORMATION
  Report Type: Spontaneous
  Country: IT (occurrence: IT)
  Receive Date: 20170602
  Receipt Date: 20240720
  Transmission Date: 20241016
  Serious: Yes (Life-Threatening, Hospitalization, Other)
  Sender: JOHNSON AND JOHNSON
  Company Number: None

PATIENT
  Age: 50 Year
  Sex: Male

DRUGS (5)
  1. YONDELIS [Interacting]
     Active Substance: TRABECTEDIN
     Indication: Synovial sarcoma metastatic
     Dosage: CYCLIC FREQUENCY
     Route: 041
     Dates: start: 20161013, end: 20161215
  2. DIOSMIN [Interacting]
     Active Substance: DIOSMIN
     Indication: Haemorrhoids
     Route: 065
  3. RAMIPRIL [Concomitant]
     Active Substance: RAMIPRIL
     Indication: Hypertension
     Route: 065
  4. LANSOPRAZOLE [Concomitant]
     Active Substance: LANSOPRAZOLE
     Indication: Product used for unknown indication
     Route: 048
  5. RAMIPRIL [Concomitant]
     Active Substance: RAMIPRIL
     Indication: Hypertension
     Route: 065

REACTIONS (5)
  - Rhabdomyolysis [Recovered/Resolved]
  - Drug interaction [Unknown]
  - Myoglobin blood increased [Unknown]
  - Blood creatine phosphokinase increased [Unknown]
  - Liver function test increased [Unknown]

NARRATIVE: CASE EVENT DATE: 20161217
